FAERS Safety Report 9029299 (Version 3)
Quarter: 2013Q2

REPORT INFORMATION
  Report Type: Spontaneous
  Country: JP (occurrence: JP)
  Receive Date: 20130124
  Receipt Date: 20130619
  Transmission Date: 20140414
  Serious: Yes (Death, Other)
  Sender: FDA-Public Use
  Company Number: JP-OTSUKA-JP-2013-10082

PATIENT
  Age: 42 Year
  Sex: Male
  Weight: 90 kg

DRUGS (5)
  1. SAMSCA [Suspect]
     Indication: CARDIOPULMONARY FAILURE
     Dosage: 3.75 MG MILLIGRAM(S), DAILY DOSE
     Route: 048
  2. SAMSCA [Suspect]
     Dosage: 7.5 MG MILLIGRAM(S), DAILY DOSE
     Route: 048
  3. THROMBOMODULIN ALFA [Concomitant]
     Indication: VENOOCCLUSIVE LIVER DISEASE
     Dosage: 130 IU/KG IU/KILOGRAM, DAILY DOSE
     Route: 065
  4. THROMBOMODULIN ALFA [Concomitant]
     Dosage: 260 IU/KG IU/KILOGRAM, DAILY DOSE
     Route: 065
  5. PLASMA, FRESH FROZEN [Concomitant]
     Indication: VENOOCCLUSIVE LIVER DISEASE
     Dosage: UNK
     Route: 042

REACTIONS (4)
  - Blood bilirubin increased [Not Recovered/Not Resolved]
  - Hypernatraemia [Recovered/Resolved]
  - Blood creatinine increased [Unknown]
  - Lymphoma [Fatal]
